FAERS Safety Report 7150018-3 (Version None)
Quarter: 2010Q4

REPORT INFORMATION
  Report Type: 
  Country: None (occurrence: None)
  Receive Date: 20101210
  Receipt Date: 20101202
  Transmission Date: 20110411
  Serious: Yes (Death, Hospitalization, Other)
  Sender: FDA-Public Use
  Company Number: TR-CELGENEUS-161-C5013-10120368

PATIENT
  Sex: Female

DRUGS (2)
  1. CC-5013 [Suspect]
     Route: 048
     Dates: start: 20100714, end: 20101015
  2. CC-5013 [Suspect]
     Route: 048

REACTIONS (3)
  - ANAEMIA [None]
  - GENERAL PHYSICAL HEALTH DETERIORATION [None]
  - THROMBOCYTOPENIA [None]
